FAERS Safety Report 9345469 (Version 3)
Quarter: 2013Q3

REPORT INFORMATION
  Report Type: Spontaneous
  Country: US (occurrence: US)
  Receive Date: 20130613
  Receipt Date: 20130822
  Transmission Date: 20140515
  Serious: Yes (Hospitalization)
  Sender: FDA-Public Use
  Company Number: US-B.I. PHARMACEUTICALS,INC./RIDGEFIELD-2013-BI-16630BP

PATIENT
  Age: 63 Year
  Sex: Female
  Weight: 60 kg

DRUGS (4)
  1. SPIRIVA [Suspect]
     Indication: CHRONIC OBSTRUCTIVE PULMONARY DISEASE
     Dosage: 18 MCG
     Route: 055
     Dates: start: 2004
  2. XANAX [Concomitant]
     Indication: ANXIETY
     Dosage: 0.5 MG
     Route: 048
  3. DILTIAZEM [Concomitant]
     Indication: CARDIAC DISORDER
     Dosage: 180 MG
     Route: 048
  4. PREDNISONE [Concomitant]
     Dosage: 4 MG
     Route: 048

REACTIONS (6)
  - Ovarian cancer [Recovered/Resolved with Sequelae]
  - Heart rate increased [Recovered/Resolved]
  - Lymphoedema [Not Recovered/Not Resolved]
  - Sinusitis [Not Recovered/Not Resolved]
  - Product quality issue [Recovered/Resolved]
  - Product quality issue [Recovered/Resolved]
